FAERS Safety Report 12917171 (Version 2)
Quarter: 2019Q1

REPORT INFORMATION
  Report Type: Spontaneous
  Country: US (occurrence: US)
  Receive Date: 20161107
  Receipt Date: 20190215
  Transmission Date: 20190417
  Serious: No
  Sender: FDA-Public Use
  Company Number: US-JAZZ-2016-US-017447

PATIENT
  Sex: Male

DRUGS (22)
  1. CIALIS [Concomitant]
     Active Substance: TADALAFIL
  2. LOVASTATIN. [Concomitant]
     Active Substance: LOVASTATIN
  3. FISH OIL [Concomitant]
     Active Substance: FISH OIL
  4. TYLENOL WITH CODEINE [Concomitant]
     Active Substance: ACETAMINOPHEN\CODEINE PHOSPHATE
  5. ABILIFY [Concomitant]
     Active Substance: ARIPIPRAZOLE
  6. LORATADINE. [Concomitant]
     Active Substance: LORATADINE
  7. ELIQUIS [Concomitant]
     Active Substance: APIXABAN
  8. CYMBALTA [Concomitant]
     Active Substance: DULOXETINE HYDROCHLORIDE
  9. MAXALT [Concomitant]
     Active Substance: RIZATRIPTAN BENZOATE
  10. RITALIN [Concomitant]
     Active Substance: METHYLPHENIDATE HYDROCHLORIDE
  11. XYREM [Suspect]
     Active Substance: SODIUM OXYBATE
     Indication: NARCOLEPSY
     Dosage: 2.25 G, BID
     Route: 048
     Dates: start: 201408, end: 201409
  12. XYREM [Suspect]
     Active Substance: SODIUM OXYBATE
     Dosage: 4.5 G, BID
     Route: 048
     Dates: start: 201409
  13. VITAMIN D3 [Concomitant]
     Active Substance: CHOLECALCIFEROL
  14. BUTALBITAL [Concomitant]
     Active Substance: BUTALBITAL
  15. AMITIZA [Concomitant]
     Active Substance: LUBIPROSTONE
  16. NORCO [Concomitant]
     Active Substance: ACETAMINOPHEN\HYDROCODONE BITARTRATE
  17. PROAIR HFA [Concomitant]
     Active Substance: ALBUTEROL SULFATE
  18. WELLBUTRIN [Concomitant]
     Active Substance: BUPROPION HYDROCHLORIDE
  19. XYREM [Suspect]
     Active Substance: SODIUM OXYBATE
     Dosage: DOSE ADJUSTMENTS
     Route: 048
     Dates: start: 201409, end: 201409
  20. DEXILANT [Concomitant]
     Active Substance: DEXLANSOPRAZOLE
  21. TYLENOL WITH CODEINE [Concomitant]
     Active Substance: ACETAMINOPHEN\CODEINE PHOSPHATE
  22. JALYN [Concomitant]
     Active Substance: DUTASTERIDE\TAMSULOSIN HYDROCHLORIDE

REACTIONS (5)
  - Weight decreased [Unknown]
  - Seasonal allergy [Unknown]
  - Hypertension [Recovered/Resolved]
  - Asthma [Unknown]
  - Hypoacusis [Unknown]

NARRATIVE: CASE EVENT DATE: 2016
